FAERS Safety Report 9286310 (Version 1)
Quarter: 2013Q2

REPORT INFORMATION
  Report Type: Spontaneous
  Country: US (occurrence: US)
  Receive Date: 20130513
  Receipt Date: 20130513
  Transmission Date: 20140414
  Serious: Yes (Disabling, Other)
  Sender: FDA-Public Use
  Company Number: US-PFIZER INC-2013132251

PATIENT
  Age: 65 Year
  Sex: Male

DRUGS (2)
  1. ZITHROMAX [Suspect]
     Indication: PNEUMONIA BACTERIAL
     Dosage: 2 CAPSULES OF 600MG ONCE WEEKLY)
  2. MYCOBUTIN [Suspect]
     Dosage: 150 MG, 2X/DAY

REACTIONS (1)
  - Pneumonia bacterial [Unknown]
